FAERS Safety Report 6939448-X (Version None)
Quarter: 2010Q3

REPORT INFORMATION
  Report Type: 
  Country: None (occurrence: None)
  Receive Date: 20100824
  Receipt Date: 20100823
  Transmission Date: 20110219
  Serious: Yes (Hospitalization)
  Sender: FDA-Public Use
  Company Number: PHHO2010DE01448

PATIENT
  Sex: Male
  Weight: 70 kg

DRUGS (2)
  1. ZOLEDRONATE T29581+SOLINJ+BM [Suspect]
     Indication: NON-SMALL CELL LUNG CANCER
     Dosage: UNK
     Dates: start: 20080213, end: 20091023
  2. MARCUMAR [Concomitant]

REACTIONS (4)
  - GENERAL PHYSICAL HEALTH DETERIORATION [None]
  - NAUSEA [None]
  - NON-SMALL CELL LUNG CANCER [None]
  - VOMITING [None]
